FAERS Safety Report 20759900 (Version 1)
Quarter: 2022Q2

REPORT INFORMATION
  Report Type: Spontaneous
  Country: US (occurrence: US)
  Receive Date: 20220427
  Receipt Date: 20220427
  Transmission Date: 20220721
  Serious: No
  Sender: FDA-Public Use
  Company Number: US-BAUSCH-BL-2022-009868

PATIENT
  Sex: Female

DRUGS (2)
  1. LUMIFY [Suspect]
     Active Substance: BRIMONIDINE TARTRATE
     Indication: Ocular hyperaemia
     Dosage: ABOUT A WEEK AGO
     Route: 047
     Dates: start: 202204, end: 202204
  2. LUMIFY [Suspect]
     Active Substance: BRIMONIDINE TARTRATE
     Dosage: USED IT AGAIN RECENTLY
     Route: 047
     Dates: start: 202204

REACTIONS (5)
  - Illness [Unknown]
  - Sinus headache [Unknown]
  - Nausea [Unknown]
  - Headache [Unknown]
  - Instillation site pain [Unknown]

NARRATIVE: CASE EVENT DATE: 20220401
